FAERS Safety Report 8291907-6 (Version None)
Quarter: 2012Q2

REPORT INFORMATION
  Report Type: 
  Country: None (occurrence: None)
  Receive Date: 20120417
  Receipt Date: 20120202
  Transmission Date: 20120825
  Serious: No
  Sender: FDA-Public Use
  Company Number: US-ASTRAZENECA-2012SE07592

PATIENT
  Age: 84 Year
  Sex: Female

DRUGS (16)
  1. LIDOCAINE [Concomitant]
  2. NEXIUM [Suspect]
     Route: 048
     Dates: start: 20060411
  3. CLARITIN [Concomitant]
  4. FISH OIL [Concomitant]
  5. ANTACID [Concomitant]
  6. ASPIRIN [Concomitant]
  7. FUROSEMIDE [Concomitant]
  8. SARNA [Concomitant]
  9. BENADRYL [Concomitant]
  10. ADVAIR DISKUS 100/50 [Concomitant]
  11. POTASSIUM CHLORIDE CR [Concomitant]
  12. BONIVA [Concomitant]
  13. SIMVASTATIN [Concomitant]
  14. TARCEVA [Concomitant]
  15. MULTI-VITAMINS [Concomitant]
  16. AZITHROMYCIN [Concomitant]

REACTIONS (3)
  - SLEEP DISORDER [None]
  - CARDIAC DISORDER [None]
  - NAUSEA [None]
